FAERS Safety Report 7062947-X (Version None)
Quarter: 2010Q4

REPORT INFORMATION
  Report Type: 
  Country: None (occurrence: None)
  Receive Date: 20101026
  Receipt Date: 20100318
  Transmission Date: 20110411
  Serious: Yes (Other)
  Sender: FDA-Public Use
  Company Number: US-PFIZER INC-2010035721

PATIENT
  Sex: Female
  Weight: 51.701 kg

DRUGS (7)
  1. LIPITOR [Suspect]
     Indication: BLOOD CHOLESTEROL INCREASED
     Dosage: UNK
     Route: 048
     Dates: start: 20070919, end: 20100314
  2. LIPITOR [Suspect]
     Indication: BLOOD TRIGLYCERIDES INCREASED
  3. TOPROL-XL [Concomitant]
     Indication: HYPERTENSION
     Dosage: UNK
  4. BUPROPION [Concomitant]
     Dosage: UNK
  5. CARBAMAZEPINE [Concomitant]
     Dosage: UNK
  6. SYNTHROID [Concomitant]
     Dosage: UNK
  7. EVISTA [Concomitant]
     Dosage: UNK

REACTIONS (5)
  - ARTHRALGIA [None]
  - BLOOD TRIGLYCERIDES INCREASED [None]
  - LOW DENSITY LIPOPROTEIN INCREASED [None]
  - MUSCLE SPASMS [None]
  - MYALGIA [None]
